FAERS Safety Report 25200431 (Version 1)
Quarter: 2025Q2

REPORT INFORMATION
  Report Type: Spontaneous
  Country: US (occurrence: US)
  Receive Date: 20250415
  Receipt Date: 20250415
  Transmission Date: 20250717
  Serious: No
  Sender: BAYER
  Company Number: US-BAYER-2025A047182

PATIENT
  Age: 60 Year
  Sex: Female

DRUGS (1)
  1. CLIMARA PRO [Suspect]
     Active Substance: ESTRADIOL\LEVONORGESTREL
     Route: 062
     Dates: start: 20250303, end: 20250403

REACTIONS (3)
  - Product packaging difficult to open [None]
  - Wrong technique in device usage process [None]
  - Application site irritation [None]
